FAERS Safety Report 6137333-7 (Version None)
Quarter: 2009Q1

REPORT INFORMATION
  Report Type: 
  Country: None (occurrence: None)
  Receive Date: 20090330
  Receipt Date: 20090324
  Transmission Date: 20090719
  Serious: Yes (Death, Hospitalization, Other)
  Sender: FDA-Public Use
  Company Number: US-ROXANE LABORATORIES, INC.-2009-RO-00278RO

PATIENT
  Age: 64 Year
  Sex: Female

DRUGS (14)
  1. METHADONE [Suspect]
     Indication: ABDOMINAL PAIN
     Dosage: 240MG
     Route: 048
  2. METHADONE [Suspect]
     Indication: BREAKTHROUGH PAIN
  3. METHADONE [Suspect]
     Route: 058
  4. METHADONE [Suspect]
     Dosage: 300MG
     Route: 048
  5. METHADONE [Suspect]
     Route: 048
  6. HYDROMORPHONE HCL [Suspect]
     Indication: ABDOMINAL PAIN
  7. DEXAMETHASONE [Suspect]
     Indication: NEURALGIA
     Dosage: 8MG
  8. HEPARIN [Suspect]
     Route: 042
  9. PROCHLORPERAZINE [Suspect]
     Indication: NAUSEA
  10. GABAPENTIN [Suspect]
     Dosage: 800MG
  11. SPIRONOLACTONE [Suspect]
     Indication: FLUID RETENTION
     Dosage: 50MG
  12. ENOXAPARIN SODIUM [Suspect]
     Dosage: 160MG
     Route: 058
  13. WARFARIN SODIUM [Suspect]
     Indication: MESENTERIC VEIN THROMBOSIS
     Dosage: 5MG
  14. WARFARIN SODIUM [Suspect]
     Indication: SPLENIC VEIN THROMBOSIS

REACTIONS (11)
  - ABDOMINAL PAIN [None]
  - DEATH [None]
  - DRUG INEFFECTIVE [None]
  - DYSPHAGIA [None]
  - INJECTION SITE INFLAMMATION [None]
  - LETHARGY [None]
  - MESENTERIC VEIN THROMBOSIS [None]
  - MYOCLONUS [None]
  - SPLENIC INFARCTION [None]
  - SPLENIC VEIN THROMBOSIS [None]
  - UNRESPONSIVE TO STIMULI [None]
